FAERS Safety Report 5194514-7 (Version None)
Quarter: 2006Q4

REPORT INFORMATION
  Report Type: 
  Country: None (occurrence: None)
  Receive Date: 20061222
  Receipt Date: 20061220
  Transmission Date: 20070319
  Serious: Yes (Other)
  Sender: FDA-Public Use
  Company Number: HQWYE714520DEC06

PATIENT
  Age: 78 Year
  Sex: Male

DRUGS (4)
  1. ANGORON (AMIODARONE, TABLET) [Suspect]
     Indication: ATRIAL FIBRILLATION
     Dosage: EVERY DAY APART FROM WEDNESDAY AND SUNDAY ORAL
     Route: 048
  2. COAPROVEL (IRBESARTAN/HYDROCHLORITHIAZIDE) [Suspect]
     Dosage: 300 IRBESARTAN/12.5 HYDROCHLOROTHIAZIDE DAILY ORAL
     Route: 048
  3. ALLOPURINOL [Concomitant]
  4. ASPIRIN [Concomitant]

REACTIONS (4)
  - ASTHENIA [None]
  - DIZZINESS [None]
  - DRUG EFFECT DECREASED [None]
  - SEXUAL DYSFUNCTION [None]
